FAERS Safety Report 9819634 (Version 4)
Quarter: 2014Q1

REPORT INFORMATION
  Report Type: Report from Study
  Country: US (occurrence: US)
  Receive Date: 20140115
  Receipt Date: 20140131
  Transmission Date: 20141002
  Serious: Yes (Other)
  Sender: FDA-Public Use
  Company Number: US-JNJFOC-20131205809

PATIENT
  Age: 38 Year
  Sex: Female
  Weight: 88 kg

DRUGS (3)
  1. EVICEL [Suspect]
     Indication: HAEMOSTASIS
     Route: 061
     Dates: start: 20130806, end: 20130806
  2. LOCAL HAEMOSTATICS [Concomitant]
     Indication: HAEMOSTASIS
     Route: 061
  3. HEPARIN [Concomitant]
     Indication: PRODUCT USED FOR UNKNOWN INDICATION
     Route: 065
     Dates: start: 20130806, end: 20130806

REACTIONS (1)
  - Arteriovenous fistula site complication [Unknown]
